FAERS Safety Report 6621960-4 (Version None)
Quarter: 2010Q1

REPORT INFORMATION
  Report Type: 
  Country: None (occurrence: None)
  Receive Date: 20100223
  Receipt Date: 20100104
  Transmission Date: 20100710
  Serious: No
  Sender: FDA-Public Use
  Company Number: 003819

PATIENT
  Sex: Female
  Weight: 65 kg

DRUGS (6)
  1. CIMZIA [Suspect]
     Indication: CROHN'S DISEASE
     Dosage: 400 MG SUBCUTANEOUS
     Route: 058
     Dates: start: 20091231
  2. PREDNISONE [Concomitant]
  3. PENTASA [Concomitant]
  4. OPTIVAR [Concomitant]
  5. IMITREX /01044801/ [Concomitant]
  6. PROAIR HFA [Concomitant]

REACTIONS (5)
  - INJECTION SITE DISCOLOURATION [None]
  - ORAL DISORDER [None]
  - OROPHARYNGEAL PAIN [None]
  - PARANASAL SINUS HYPERSECRETION [None]
  - THROAT LESION [None]
